FAERS Safety Report 25608046 (Version 1)
Quarter: 2025Q3

REPORT INFORMATION
  Report Type: Spontaneous
  Country: MY (occurrence: MY)
  Receive Date: 20250725
  Receipt Date: 20250725
  Transmission Date: 20251021
  Serious: Yes (Other)
  Sender: PFIZER
  Company Number: MY-PFIZER INC-202500148693

PATIENT
  Age: 62 Year
  Sex: Female

DRUGS (2)
  1. DYNASTAT [Suspect]
     Active Substance: PARECOXIB SODIUM
     Indication: Analgesic therapy
     Dosage: 40 MG, EVERY 12 HOURS
     Route: 042
  2. ZITHROMAX [Suspect]
     Active Substance: AZITHROMYCIN DIHYDRATE
     Indication: Tonsillitis
     Dosage: 500 MG, 1X/DAY
     Route: 042

REACTIONS (6)
  - Dyspnoea [Recovering/Resolving]
  - Feeling hot [Recovering/Resolving]
  - Rash erythematous [Recovering/Resolving]
  - Pruritus [Recovering/Resolving]
  - Eye swelling [Recovering/Resolving]
  - Off label use [Unknown]
